FAERS Safety Report 4865132-2 (Version None)
Quarter: 2005Q4

REPORT INFORMATION
  Report Type: 
  Country: None (occurrence: None)
  Receive Date: 20051219
  Receipt Date: 20051212
  Transmission Date: 20060501
  Serious: Yes (Death, Life-Threatening, Hospitalization)
  Sender: FDA-Public Use
  Company Number: US016508

PATIENT
  Age: 76 Year
  Sex: Male

DRUGS (3)
  1. ARSENIC TRIOXIDE [Suspect]
     Indication: MULTIPLE MYELOMA
  2. ASCORBIC ACID [Suspect]
     Indication: MULTIPLE MYELOMA
  3. DEXAMETHASONE ^COPHAR^ [Suspect]
     Indication: MULTIPLE MYELOMA

REACTIONS (7)
  - CARDIO-RESPIRATORY ARREST [None]
  - HYPOTENSION [None]
  - PNEUMONIA [None]
  - PYREXIA [None]
  - RESPIRATORY DISTRESS [None]
  - SEPTIC SHOCK [None]
  - VENTRICULAR ARRHYTHMIA [None]
